FAERS Safety Report 18376148 (Version 2)
Quarter: 2020Q4

REPORT INFORMATION
  Report Type: Spontaneous
  Country: US (occurrence: US)
  Receive Date: 20201013
  Receipt Date: 20201201
  Transmission Date: 20210114
  Serious: No
  Sender: FDA-Public Use
  Company Number: NVSC2020US268026

PATIENT
  Sex: Female

DRUGS (1)
  1. TOBRAMYCIN AND DEXAMETHASONE [Suspect]
     Active Substance: DEXAMETHASONE\TOBRAMYCIN
     Indication: PRODUCT USED FOR UNKNOWN INDICATION
     Dosage: UNK UNK, QID
     Route: 065

REACTIONS (2)
  - Drug ineffective [Unknown]
  - Liquid product physical issue [Unknown]
